FAERS Safety Report 21096702 (Version 1)
Quarter: 2022Q3

REPORT INFORMATION
  Report Type: Spontaneous
  Country: US (occurrence: US)
  Receive Date: 20220718
  Receipt Date: 20220718
  Transmission Date: 20221027
  Serious: Yes (Hospitalization)
  Sender: FDA-Public Use
  Company Number: US-PFIZER INC-202200960683

PATIENT
  Age: 59 Year
  Sex: Female

DRUGS (5)
  1. PAXLOVID [Suspect]
     Active Substance: NIRMATRELVIR\RITONAVIR
     Indication: COVID-19 treatment
     Dosage: UNK
     Dates: start: 20220711, end: 20220712
  2. VITAMIN D3 [Concomitant]
     Active Substance: CHOLECALCIFEROL
     Dosage: 50 UG
     Dates: start: 20210101, end: 20220614
  3. LEVOTHYROXINE [Concomitant]
     Active Substance: LEVOTHYROXINE
     Dosage: 100 UG
     Dates: start: 20220202, end: 20220711
  4. LEVOTHYROXINE [Concomitant]
     Active Substance: LEVOTHYROXINE
     Dosage: 88 UG
     Dates: start: 20220712, end: 20220714
  5. ORACEA [DOXYCYCLINE] [Concomitant]
     Dosage: UNK
     Dates: start: 20211101, end: 20220714

REACTIONS (3)
  - Presyncope [Recovering/Resolving]
  - Hypotension [Recovering/Resolving]
  - Colitis [Recovering/Resolving]

NARRATIVE: CASE EVENT DATE: 20220712
